FAERS Safety Report 9917573 (Version 1)
Quarter: 2014Q1

REPORT INFORMATION
  Report Type: Spontaneous
  Country: US (occurrence: US)
  Receive Date: 20140221
  Receipt Date: 20140221
  Transmission Date: 20141002
  Serious: Yes (Other)
  Sender: FDA-Public Use
  Company Number: US-FRI-1000054421

PATIENT
  Age: 65 Year
  Sex: Male

DRUGS (8)
  1. DALIRESP [Suspect]
     Indication: CHRONIC OBSTRUCTIVE PULMONARY DISEASE
     Dosage: 500 MCG
     Dates: start: 20131216, end: 20140131
  2. ALBUTEROL SULFATE [Concomitant]
  3. FLONASE [Concomitant]
  4. LISINOPRIL [Concomitant]
  5. METFORMIN [Concomitant]
  6. TRAZODONE [Concomitant]
  7. ZOCOR [Concomitant]
  8. ZYRTEC [Concomitant]

REACTIONS (3)
  - Cardioversion [Unknown]
  - Atrial fibrillation [Unknown]
  - Tachycardia [Unknown]
